FAERS Safety Report 7340880-3 (Version None)
Quarter: 2011Q1

REPORT INFORMATION
  Report Type: 
  Country: None (occurrence: None)
  Receive Date: 20110228
  Receipt Date: 20110207
  Transmission Date: 20110831
  Serious: Yes (Hospitalization)
  Sender: FDA-Public Use
  Company Number: 02242011 MH-A

PATIENT
  Sex: Male
  Weight: 11 kg

DRUGS (3)
  1. HURRICAINE TOPICAL ANESTHETIC GEL [Suspect]
     Indication: TEETHING
     Dates: start: 20110202, end: 20110203
  2. CEPHALOSPORIN [Concomitant]
  3. ORAJEL GEL [Suspect]
     Indication: TEETHING
     Dates: start: 20110202, end: 20110203

REACTIONS (1)
  - METHAEMOGLOBINAEMIA [None]
